FAERS Safety Report 24760735 (Version 1)
Quarter: 2024Q4

REPORT INFORMATION
  Report Type: Spontaneous
  Country: JP (occurrence: JP)
  Receive Date: 20241220
  Receipt Date: 20241220
  Transmission Date: 20250115
  Serious: Yes (Death, Hospitalization)
  Sender: JOHNSON AND JOHNSON
  Company Number: JP-JNJFOC-20241108101

PATIENT
  Age: 80 Year
  Sex: Male

DRUGS (1)
  1. UPTRAVI [Suspect]
     Active Substance: SELEXIPAG
     Indication: Pulmonary hypertension
     Route: 048

REACTIONS (4)
  - Cellulitis [Fatal]
  - Infection [Fatal]
  - Myelodysplastic syndrome [Unknown]
  - Anaemia [Unknown]
